FAERS Safety Report 18149599 (Version 1)
Quarter: 2020Q3

REPORT INFORMATION
  Report Type: Spontaneous
  Country: PL (occurrence: PL)
  Receive Date: 20200814
  Receipt Date: 20200814
  Transmission Date: 20201103
  Serious: Yes (Death)
  Sender: FDA-Public Use
  Company Number: PL-TEVA-2020-PL-1813784

PATIENT
  Age: 76 Year
  Sex: Female

DRUGS (1)
  1. IBUPROFEN. [Suspect]
     Active Substance: IBUPROFEN
     Indication: POLYARTHRITIS
     Route: 048
     Dates: start: 202002, end: 20200705

REACTIONS (2)
  - Acute kidney injury [Fatal]
  - Haematuria [Fatal]

NARRATIVE: CASE EVENT DATE: 20200706
